FAERS Safety Report 7014673-0 (Version None)
Quarter: 2010Q3

REPORT INFORMATION
  Report Type: 
  Country: None (occurrence: None)
  Receive Date: 20100927
  Receipt Date: 20100917
  Transmission Date: 20110219
  Serious: Yes (Hospitalization)
  Sender: FDA-Public Use
  Company Number: NL-TEVA-224558ISR

PATIENT
  Sex: Female
  Weight: 70 kg

DRUGS (2)
  1. LITHIUM CARBONATE [Interacting]
     Indication: INFECTION
     Route: 048
  2. AMOXICILLIN AND CLAVULANATE POTASSIUM [Suspect]
     Dosage: UNIT DOSE:500/125 MG
     Route: 048
     Dates: start: 20091221

REACTIONS (2)
  - DRUG INTERACTION [None]
  - THERAPEUTIC AGENT TOXICITY [None]
